FAERS Safety Report 4591479-3 (Version None)
Quarter: 2005Q1

REPORT INFORMATION
  Report Type: 
  Country: None (occurrence: None)
  Receive Date: 20050225
  Receipt Date: 20050218
  Transmission Date: 20050727
  Serious: Yes (Death)
  Sender: FDA-Public Use
  Company Number: PHBS2005JP02572

PATIENT
  Age: 44 Year
  Sex: Male

DRUGS (6)
  1. METHOTREXATE [Suspect]
     Indication: BONE MARROW TRANSPLANT
     Dosage: 15 MG/M2
     Route: 065
  2. METHOTREXATE [Suspect]
     Dosage: 10 MG/M2/D
     Route: 065
  3. CYCLOPHOSPHAMIDE [Concomitant]
     Indication: BONE MARROW TRANSPLANT
     Dosage: 60 MG/KG/D
  4. BUSULFAN [Concomitant]
     Indication: BONE MARROW TRANSPLANT
     Dosage: 4 MG/KG/D
     Route: 065
  5. IRRADIATION [Concomitant]
  6. CYCLOSPORINE [Suspect]
     Indication: BONE MARROW TRANSPLANT
     Dosage: 3 MG/KG/D
     Route: 065

REACTIONS (6)
  - ALANINE AMINOTRANSFERASE INCREASED [None]
  - ASPARTATE AMINOTRANSFERASE INCREASED [None]
  - CYTOMEGALOVIRUS ANTIGEN POSITIVE [None]
  - GRAFT VERSUS HOST DISEASE [None]
  - HEPATIC FAILURE [None]
  - JAUNDICE [None]
